FAERS Safety Report 16501451 (Version 1)
Quarter: 2019Q3

REPORT INFORMATION
  Report Type: Spontaneous
  Country: US (occurrence: US)
  Receive Date: 20190629
  Receipt Date: 20190629
  Transmission Date: 20191004
  Serious: Yes (Other)
  Sender: FDA-Public Use
  Company Number: None

PATIENT
  Age: 23 Year
  Sex: Female
  Weight: 58.5 kg

DRUGS (1)
  1. DEPO-PROVERA [Suspect]
     Active Substance: MEDROXYPROGESTERONE ACETATE
     Indication: CONTRACEPTION
     Dates: start: 20110101, end: 20160101

REACTIONS (8)
  - Bladder disorder [None]
  - Menopause [None]
  - Adrenal insufficiency [None]
  - Renal disorder [None]
  - Thyroid disorder [None]
  - Sexual dysfunction [None]
  - Osteoarthritis [None]
  - Mental disorder [None]

NARRATIVE: CASE EVENT DATE: 20190601
